FAERS Safety Report 12221450 (Version 1)
Quarter: 2016Q1

REPORT INFORMATION
  Report Type: Report from Study
  Country: CZ (occurrence: CZ)
  Receive Date: 20160330
  Receipt Date: 20160330
  Transmission Date: 20160526
  Serious: Yes (Hospitalization)
  Sender: FDA-Public Use
  Company Number: CZ-BIOGEN-2016BI00209150

PATIENT
  Age: 45 Year
  Sex: Female

DRUGS (7)
  1. BACLOFEN. [Concomitant]
     Active Substance: BACLOFEN
     Indication: MUSCLE SPASMS
     Dosage: IN THE MORNING
     Route: 065
     Dates: start: 20121204
  2. TOVIAZ [Concomitant]
     Active Substance: FESOTERODINE FUMARATE
     Indication: MUSCLE DISORDER
     Route: 065
     Dates: start: 20111116
  3. BACLOFEN. [Concomitant]
     Active Substance: BACLOFEN
     Dosage: AT NIGHT
     Route: 065
     Dates: start: 20121204
  4. OMNIC [Concomitant]
     Active Substance: TAMSULOSIN HYDROCHLORIDE
     Indication: MUSCLE DISORDER
     Route: 065
     Dates: start: 20131008
  5. TYSABRI [Suspect]
     Active Substance: NATALIZUMAB
     Indication: PRODUCT USED FOR UNKNOWN INDICATION
     Route: 065
     Dates: start: 20131008, end: 20150819
  6. ATENOLOL. [Concomitant]
     Active Substance: ATENOLOL
     Indication: TACHYCARDIA
     Route: 065
     Dates: start: 20111116
  7. CITALON [Concomitant]
     Indication: DEPRESSION
     Route: 065
     Dates: start: 20091014

REACTIONS (1)
  - Pancreatitis acute [Recovered/Resolved]

NARRATIVE: CASE EVENT DATE: 20150908
